FAERS Safety Report 9199124 (Version 1)
Quarter: 2013Q1

REPORT INFORMATION
  Report Type: Spontaneous
  Country: IT (occurrence: None)
  Receive Date: 20130326
  Receipt Date: 20130326
  Transmission Date: 20140127
  Serious: Yes (Hospitalization)
  Sender: FDA-Public Use
  Company Number: 2013-05196

PATIENT
  Age: 5 Year
  Sex: Male
  Weight: 21 kg

DRUGS (3)
  1. PARACETAMOL [Suspect]
     Indication: PYREXIA
     Dates: start: 20130210, end: 20130212
  2. SUPRACEF (CEFIXIME) [Suspect]
     Indication: PYREXIA
     Route: 048
     Dates: start: 20130210, end: 20130212
  3. NUROFEN [Suspect]
     Indication: PYREXIA
     Route: 048
     Dates: start: 20130210, end: 20130212

REACTIONS (4)
  - Myalgia [None]
  - Blood creatine phosphokinase increased [None]
  - Blood lactate dehydrogenase increased [None]
  - Transaminases increased [None]
